FAERS Safety Report 20326107 (Version 2)
Quarter: 2022Q1

REPORT INFORMATION
  Report Type: Report from Study
  Country: CA (occurrence: CA)
  Receive Date: 20220112
  Receipt Date: 20220121
  Transmission Date: 20220424
  Serious: Yes (Death, Other)
  Sender: FDA-Public Use
  Company Number: CA-BAYER-2022A003163

PATIENT

DRUGS (3)
  1. EYLEA [Suspect]
     Active Substance: AFLIBERCEPT
     Indication: Diabetic retinal oedema
     Dosage: 40MG/ML
     Dates: start: 201406
  2. EYLEA [Suspect]
     Active Substance: AFLIBERCEPT
     Dosage: 40MG/ML, AFFECTED EYE, DOSE, FREQUENCY OR TOTAL NUMBER OF INJECTIONS WAS NOT REPORTED
     Dates: start: 20180820
  3. EYLEA [Suspect]
     Active Substance: AFLIBERCEPT
     Dosage: 40MG/ML
     Dates: end: 201812

REACTIONS (1)
  - Death [Fatal]

NARRATIVE: CASE EVENT DATE: 20200420
